FAERS Safety Report 4432859-6 (Version None)
Quarter: 2004Q3

REPORT INFORMATION
  Report Type: 
  Country: None (occurrence: None)
  Receive Date: 20040823
  Receipt Date: 20040811
  Transmission Date: 20050211
  Serious: Yes (Life-Threatening, Hospitalization)
  Sender: FDA-Public Use
  Company Number: 2004-07-1551

PATIENT
  Age: 70 Year
  Sex: Male

DRUGS (7)
  1. FLUTAMIDE [Suspect]
     Indication: PROSTATE CANCER
     Dosage: 375 MG DAILY ORAL
     Route: 048
     Dates: start: 20040426, end: 20040611
  2. CILOSTAZOL TABLETS [Suspect]
     Dosage: 2 TABLETS ORAL
     Route: 048
     Dates: end: 20040611
  3. ENALAPRIL MALEATE ORALS [Suspect]
     Dosage: 5 MG ORAL
     Route: 048
     Dates: end: 20040611
  4. SPIRONOLACTONE [Concomitant]
  5. TICLOPIDINE HCL [Concomitant]
  6. BUFORMIN [Concomitant]
  7. NIFEDIPINE CAPSULES [Concomitant]

REACTIONS (2)
  - INTERSTITIAL LUNG DISEASE [None]
  - RESPIRATORY FAILURE [None]
